FAERS Safety Report 4642183-4 (Version None)
Quarter: 2005Q2

REPORT INFORMATION
  Report Type: 
  Country: None (occurrence: None)
  Receive Date: 20050421
  Receipt Date: 20050302
  Transmission Date: 20051028
  Serious: Yes (Death)
  Sender: FDA-Public Use
  Company Number: 2005S1000926

PATIENT
  Age: 51 Year
  Sex: Female
  Weight: 138.8007 kg

DRUGS (4)
  1. CLOZAPINE [Suspect]
     Indication: SCHIZOAFFECTIVE DISORDER
     Dosage: 300 MG; HS; PO
     Route: 048
     Dates: start: 20031013, end: 20050201
  2. BUPROPION HYDROCHLORIDE [Concomitant]
  3. PAROXETINE HCL [Concomitant]
  4. DILTIAZEM HYDROCHLORIDE [Concomitant]

REACTIONS (3)
  - ANEURYSM [None]
  - HEADACHE [None]
  - MALAISE [None]
